FAERS Safety Report 6823952-9 (Version None)
Quarter: 2010Q3

REPORT INFORMATION
  Report Type: 
  Country: None (occurrence: None)
  Receive Date: 20100708
  Receipt Date: 20060925
  Transmission Date: 20110219
  Serious: No
  Sender: FDA-Public Use
  Company Number: US-PFIZER INC-2006116946

PATIENT
  Sex: Female
  Weight: 65.77 kg

DRUGS (8)
  1. CHANTIX [Suspect]
     Indication: EX-TOBACCO USER
     Dates: start: 20060915
  2. LIPITOR [Concomitant]
  3. ESTROGEN NOS [Concomitant]
  4. PROGESTERONE [Concomitant]
  5. NEXIUM [Concomitant]
  6. ATENOLOL [Concomitant]
  7. ASPIRIN [Concomitant]
  8. VITAMIN B COMPLEX CAP [Concomitant]

REACTIONS (2)
  - MICTURITION URGENCY [None]
  - NAUSEA [None]
